FAERS Safety Report 12638790 (Version 15)
Quarter: 2018Q2

REPORT INFORMATION
  Report Type: Report from Study
  Country: BR (occurrence: BR)
  Receive Date: 20160809
  Receipt Date: 20180529
  Transmission Date: 20180711
  Serious: Yes (Life-Threatening, Hospitalization, Other)
  Sender: FDA-Public Use
  Company Number: PHHY2016BR109164

PATIENT
  Age: 62 Year
  Sex: Female
  Weight: 42 kg

DRUGS (5)
  1. SANDOSTATIN LAR DEPOT [Suspect]
     Active Substance: OCTREOTIDE ACETATE
     Indication: NEUROENDOCRINE TUMOUR
     Dosage: 20 MG, UNK
     Route: 030
     Dates: start: 201208
  2. SANDOSTATIN LAR DEPOT [Suspect]
     Active Substance: OCTREOTIDE ACETATE
     Indication: GASTROINTESTINAL NEOPLASM
     Dosage: UNK UNK, QMO
     Route: 030
     Dates: end: 20180426
  3. SANDOSTATIN LAR DEPOT [Suspect]
     Active Substance: OCTREOTIDE ACETATE
     Dosage: 30 MG, QMO (ONCE A MONTH)
     Route: 030
  4. VITAMINS NOS [Concomitant]
     Active Substance: VITAMINS
     Indication: PRODUCT USED FOR UNKNOWN INDICATION
     Dosage: UNK
     Route: 065
  5. AFINITOR [Suspect]
     Active Substance: EVEROLIMUS
     Indication: NEUROENDOCRINE TUMOUR
     Dosage: 10 MG, UNK
     Route: 048
     Dates: start: 201208, end: 201312

REACTIONS (36)
  - Asthenia [Unknown]
  - Carcinoid crisis [Recovered/Resolved]
  - Anaemia [Recovering/Resolving]
  - Varicose vein [Unknown]
  - Hepatic lesion [Unknown]
  - Diarrhoea [Unknown]
  - Abdominal pain [Not Recovered/Not Resolved]
  - Hepatic pain [Recovering/Resolving]
  - Pain [Not Recovered/Not Resolved]
  - Lung neoplasm [Unknown]
  - Abdominal adhesions [Recovered/Resolved]
  - Muscle spasms [Unknown]
  - Inflammation [Unknown]
  - Arthropathy [Unknown]
  - Obstruction [Unknown]
  - Hypoaesthesia [Unknown]
  - Drug intolerance [Unknown]
  - Myelitis [Unknown]
  - Protein total abnormal [Unknown]
  - Back pain [Unknown]
  - Hepatomegaly [Unknown]
  - Pain in extremity [Recovering/Resolving]
  - Pulmonary mass [Unknown]
  - Dysphagia [Unknown]
  - Gastrointestinal disorder [Unknown]
  - Malaise [Unknown]
  - Nausea [Not Recovered/Not Resolved]
  - Inappropriate schedule of drug administration [Unknown]
  - Dysstasia [Unknown]
  - Feeding disorder [Recovering/Resolving]
  - Intestinal metastasis [Unknown]
  - Malignant neoplasm progression [Unknown]
  - Weight decreased [Unknown]
  - Crohn^s disease [Unknown]
  - Weight increased [Unknown]
  - Vomiting [Unknown]

NARRATIVE: CASE EVENT DATE: 201604
